FAERS Safety Report 7935827-2 (Version None)
Quarter: 2011Q4

REPORT INFORMATION
  Report Type: 
  Country: None (occurrence: None)
  Receive Date: 20111123
  Receipt Date: 20111116
  Transmission Date: 20120403
  Serious: Yes (Hospitalization, Other)
  Sender: FDA-Public Use
  Company Number: US-JNJFOC-20110400163

PATIENT
  Sex: Female

DRUGS (12)
  1. LEVAQUIN [Suspect]
     Indication: LUNG INFILTRATION
     Route: 048
     Dates: start: 20090301
  2. NEXIUM [Concomitant]
     Indication: GASTROOESOPHAGEAL REFLUX DISEASE
     Route: 065
     Dates: start: 19920101
  3. ALLEGRA [Concomitant]
     Indication: SLEEP DISORDER
     Route: 065
     Dates: start: 20000101
  4. COUMADIN [Concomitant]
     Indication: SYSTEMIC LUPUS ERYTHEMATOSUS
     Route: 065
     Dates: start: 20020101
  5. FOLIC ACID [Concomitant]
     Indication: NUTRITIONAL SUPPORT
     Route: 065
     Dates: start: 19900101
  6. METHYLPREDNISOLONE [Suspect]
     Indication: SYSTEMIC LUPUS ERYTHEMATOSUS
     Route: 065
     Dates: start: 20050101
  7. TRIAMTERENE [Concomitant]
     Indication: DIURETIC THERAPY
     Route: 065
     Dates: start: 20020101
  8. METHOTREXATE [Concomitant]
     Indication: SYSTEMIC LUPUS ERYTHEMATOSUS
     Route: 065
  9. CYCLOBENZAPRINE [Concomitant]
     Indication: ABDOMINAL RIGIDITY
     Route: 065
     Dates: start: 20020101
  10. TRIAMCINOLONE [Concomitant]
     Indication: SYSTEMIC LUPUS ERYTHEMATOSUS
     Route: 065
     Dates: start: 19910101
  11. PREDNISONE TAB [Suspect]
     Indication: PRODUCT USED FOR UNKNOWN INDICATION
     Route: 065
  12. ZOFRAN [Concomitant]
     Indication: SYSTEMIC LUPUS ERYTHEMATOSUS
     Route: 065
     Dates: start: 20000101

REACTIONS (5)
  - TENDONITIS [None]
  - MUSCLE RUPTURE [None]
  - TENDON RUPTURE [None]
  - ROTATOR CUFF SYNDROME [None]
  - HALLUCINATION [None]
